FAERS Safety Report 8235427-3 (Version None)
Quarter: 2012Q1

REPORT INFORMATION
  Report Type: 
  Country: None (occurrence: None)
  Receive Date: 20120322
  Receipt Date: 20120207
  Transmission Date: 20120608
  Serious: Yes (Life-Threatening, Hospitalization, Other)
  Sender: FDA-Public Use
  Company Number: NSR_00492_2012

PATIENT
  Age: 52 Year
  Sex: Male

DRUGS (2)
  1. CHLORPROTHIXENE (CHLOROPROTIXEN) [Suspect]
     Indication: DEPRESSION
     Dosage: (30 MG, DF)
  2. VENLAFAXINE [Suspect]
     Indication: DEPRESSION

REACTIONS (4)
  - GASTROENTERITIS [None]
  - SLEEP DISORDER [None]
  - INAPPROPRIATE ANTIDIURETIC HORMONE SECRETION [None]
  - ALTERED STATE OF CONSCIOUSNESS [None]
